FAERS Safety Report 13817535 (Version 3)
Quarter: 2017Q4

REPORT INFORMATION
  Report Type: Report from Study
  Country: US (occurrence: CA)
  Receive Date: 20170731
  Receipt Date: 20171002
  Transmission Date: 20180320
  Serious: Yes (Hospitalization, Other)
  Sender: FDA-Public Use
  Company Number: US-SUNOVION-2017SUN000914

PATIENT
  Age: 74 Year
  Sex: Female

DRUGS (10)
  1. INDACATEROL AND GLYCOPYRROLATE [Suspect]
     Active Substance: GLYCOPYRROLATE\INDACATEROL MALEATE
     Indication: ASTHMA
     Dosage: 2 DF, BID
     Route: 055
  2. XOLAIR [Suspect]
     Active Substance: OMALIZUMAB
     Dosage: UNK; REGIMEN #2
     Route: 058
     Dates: start: 20170221
  3. XOLAIR [Suspect]
     Active Substance: OMALIZUMAB
     Dosage: UNK; REGIMEN #3
     Route: 058
     Dates: start: 20170321
  4. XOLAIR [Suspect]
     Active Substance: OMALIZUMAB
     Dosage: UNK; REGIMEN #4
     Route: 058
     Dates: start: 20170613
  5. PREDNISONE. [Concomitant]
     Active Substance: PREDNISONE
     Dosage: 5 MG, UNK
     Dates: start: 20150315, end: 20170505
  6. ALVESCO [Concomitant]
     Active Substance: CICLESONIDE
     Dosage: UNK
  7. XOLAIR [Suspect]
     Active Substance: OMALIZUMAB
     Indication: ASTHMA
     Dosage: 300 MG, EVERY FOUR WEEKS; REGIMEN #1
     Route: 058
     Dates: start: 20170124
  8. XOLAIR [Suspect]
     Active Substance: OMALIZUMAB
     Dosage: UNK; REGIMEN #5
     Route: 058
     Dates: start: 20170719
  9. XOLAIR [Suspect]
     Active Substance: OMALIZUMAB
     Dosage: UNK; REGIMEN #6
     Route: 058
     Dates: start: 20170811
  10. VENTOLIN [Concomitant]
     Active Substance: ALBUTEROL SULFATE
     Dosage: 100 ?G, UNK
     Dates: start: 20150215

REACTIONS (8)
  - Pneumonia [Recovering/Resolving]
  - Lung infection [Unknown]
  - Myocardial infarction [Unknown]
  - Bronchitis bacterial [Recovering/Resolving]
  - Dyspnoea [Not Recovered/Not Resolved]
  - Oxygen saturation decreased [Unknown]
  - Drug ineffective [Unknown]
  - Blood pressure systolic increased [Unknown]

NARRATIVE: CASE EVENT DATE: 20170221
